FAERS Safety Report 12701039 (Version 2)
Quarter: 2016Q3

REPORT INFORMATION
  Report Type: Other
  Country: DE (occurrence: DE)
  Receive Date: 20160831
  Receipt Date: 20160909
  Transmission Date: 20161109
  Serious: Yes (Death)
  Sender: FDA-Public Use
  Company Number: DE-JUBILANT GENERICS LIMITED-1056900

PATIENT
  Age: 76 Year
  Sex: Female

DRUGS (12)
  1. DABIGATRAN [Concomitant]
     Active Substance: DABIGATRAN
  2. FESOTERODINE [Concomitant]
     Active Substance: FESOTERODINE
  3. LORAZEPAM. [Suspect]
     Active Substance: LORAZEPAM
  4. METHOTREXATE SODIUM. [Concomitant]
     Active Substance: METHOTREXATE SODIUM
  5. VENLAFAXINE [Suspect]
     Active Substance: VENLAFAXINE HYDROCHLORIDE
  6. PREDNISOLONE. [Suspect]
     Active Substance: PREDNISOLONE
  7. PRADAXA [Suspect]
     Active Substance: DABIGATRAN ETEXILATE MESYLATE
  8. OXYCODONE/NALOXONE [Concomitant]
     Active Substance: NALOXONE HYDROCHLORIDE\OXYCODONE HYDROCHLORIDE
  9. PANTOPRAZOLE SODIUM. [Concomitant]
     Active Substance: PANTOPRAZOLE SODIUM
  10. CALCIUM [Concomitant]
     Active Substance: CALCIUM
  11. OLANZAPINE. [Suspect]
     Active Substance: OLANZAPINE
  12. CHOLECALCIFEROL [Concomitant]
     Active Substance: CHOLECALCIFEROL

REACTIONS (4)
  - Haemorrhage [Fatal]
  - Multiple fractures [Fatal]
  - Circulatory collapse [Fatal]
  - Epilepsy [Fatal]

NARRATIVE: CASE EVENT DATE: 20160815
